FAERS Safety Report 7699396-7 (Version None)
Quarter: 2011Q3

REPORT INFORMATION
  Report Type: 
  Country: None (occurrence: None)
  Receive Date: 20110819
  Receipt Date: 20110727
  Transmission Date: 20111222
  Serious: Yes (Hospitalization)
  Sender: FDA-Public Use
  Company Number: FR-ASTRAZENECA-2011SE44994

PATIENT
  Age: 31472 Day
  Sex: Female

DRUGS (10)
  1. NEXIUM [Suspect]
     Route: 048
     Dates: start: 20050101, end: 20110624
  2. SECTRAL [Concomitant]
     Route: 048
     Dates: start: 20080101
  3. FUROSEMIDE [Concomitant]
     Route: 048
     Dates: start: 20080101
  4. RAMIPRIL [Concomitant]
     Route: 048
     Dates: start: 20070101, end: 20110622
  5. FOSAMAX [Concomitant]
     Route: 048
     Dates: start: 20100101
  6. MODOPAR [Concomitant]
     Route: 048
  7. ASPIRIN [Concomitant]
     Route: 048
     Dates: start: 20060101
  8. STALEVO 100 [Concomitant]
     Route: 048
     Dates: start: 20110201
  9. STABLON [Concomitant]
     Route: 048
  10. TRIVASTAL [Concomitant]
     Route: 048

REACTIONS (2)
  - BLOOD CREATINE PHOSPHOKINASE INCREASED [None]
  - MYOGLOBIN BLOOD INCREASED [None]
